FAERS Safety Report 17089445 (Version 1)
Quarter: 2019Q4

REPORT INFORMATION
  Report Type: Spontaneous
  Country: JP (occurrence: JP)
  Receive Date: 20191128
  Receipt Date: 20191128
  Transmission Date: 20200122
  Serious: Yes (Other)
  Sender: FDA-Public Use
  Company Number: JP-009507513-1911JPN002830J

PATIENT
  Age: 59 Year
  Sex: Female

DRUGS (4)
  1. TOFOGLIFLOZIN [Suspect]
     Active Substance: TOFOGLIFLOZIN
     Dosage: 20 MILLIGRAM, QD
     Route: 048
  2. METFORMIN HYDROCHLORIDE. [Concomitant]
     Active Substance: METFORMIN HYDROCHLORIDE
     Dosage: 250 MILLIGRAM, TID
     Route: 048
  3. JANUVIA [Suspect]
     Active Substance: SITAGLIPTIN PHOSPHATE
     Indication: TYPE 2 DIABETES MELLITUS
     Dosage: 50 MILLIGRAM, BID
     Route: 048
  4. ATENOLOL. [Concomitant]
     Active Substance: ATENOLOL
     Dosage: 25 MILLIGRAM, QD
     Route: 048

REACTIONS (3)
  - Off label use [Unknown]
  - Ketoacidosis [Recovered/Resolved]
  - Acute myocardial infarction [Unknown]
